FAERS Safety Report 4680878-7 (Version None)
Quarter: 2005Q2

REPORT INFORMATION
  Report Type: 
  Country: None (occurrence: None)
  Receive Date: 20050531
  Receipt Date: 20050531
  Transmission Date: 20051028
  Serious: Yes (Life-Threatening)
  Sender: FDA-Public Use
  Company Number: None

PATIENT
  Age: 65 Year
  Sex: Male
  Weight: 104 kg

DRUGS (1)
  1. STRATTERA [Suspect]
     Dosage: 80 MG QD

REACTIONS (2)
  - BLOOD PRESSURE DECREASED [None]
  - PROCEDURAL COMPLICATION [None]
